FAERS Safety Report 13706924 (Version 2)
Quarter: 2017Q3

REPORT INFORMATION
  Report Type: Spontaneous
  Country: EG (occurrence: EG)
  Receive Date: 20170630
  Receipt Date: 20170714
  Transmission Date: 20171127
  Serious: Yes (Other)
  Sender: FDA-Public Use
  Company Number: EG-ELI_LILLY_AND_COMPANY-EG201706012572

PATIENT
  Sex: Male

DRUGS (1)
  1. ERBITUX [Suspect]
     Active Substance: CETUXIMAB
     Indication: HEAD AND NECK CANCER
     Dosage: 400 MG, WEEKLY (1/W)
     Route: 042
     Dates: start: 20170520

REACTIONS (2)
  - Hyperhidrosis [Unknown]
  - Chest pain [Unknown]

NARRATIVE: CASE EVENT DATE: 2017
